FAERS Safety Report 4645932-4 (Version None)
Quarter: 2005Q2

REPORT INFORMATION
  Report Type: 
  Country: None (occurrence: None)
  Receive Date: 20050427
  Receipt Date: 20050418
  Transmission Date: 20051028
  Serious: Yes (Other)
  Sender: FDA-Public Use
  Company Number: 200513273US

PATIENT
  Sex: Female
  Weight: 100 kg

DRUGS (2)
  1. ALLEGRA D 24 HOUR [Suspect]
     Indication: SEASONAL ALLERGY
     Dates: start: 20050418, end: 20050418
  2. POTASSIUM CHLORIDE [Concomitant]
     Dosage: DOSE: UNKNOWN

REACTIONS (5)
  - CHEST DISCOMFORT [None]
  - COUGH [None]
  - DYSPNOEA [None]
  - MUSCLE FATIGUE [None]
  - THROAT TIGHTNESS [None]
